FAERS Safety Report 16687045 (Version 1)
Quarter: 2019Q3

REPORT INFORMATION
  Report Type: Report from Study
  Country: IT (occurrence: IT)
  Receive Date: 20190809
  Receipt Date: 20190809
  Transmission Date: 20191004
  Serious: Yes (Hospitalization)
  Sender: FDA-Public Use
  Company Number: IT-ACCORD-150941

PATIENT
  Age: 68 Year
  Sex: Male

DRUGS (10)
  1. FOLINA [Concomitant]
     Dosage: STRENGTH: 5 MG
  2. BLOPRESS [Concomitant]
     Active Substance: CANDESARTAN CILEXETIL
     Dosage: STRENGTH: 8 MG
  3. CARDIOASPIRIN [Concomitant]
     Active Substance: ASPIRIN
     Dosage: STRENGTH: 100 MG
  4. LUVION [Concomitant]
     Dosage: STRENGTH: 50 MG
  5. CONGESCOR [Concomitant]
     Active Substance: BISOPROLOL
     Dosage: STRENGTH: 1.25 MG
  6. TORVAST [Concomitant]
     Active Substance: ATORVASTATIN
     Dosage: STRENGTH: 10 MG
  7. LASIX [Concomitant]
     Active Substance: FUROSEMIDE
     Dosage: STRENGTH: 25 MG
  8. LANSOX [Concomitant]
     Active Substance: LANSOPRAZOLE
     Dosage: STRENGTH: 15 MG
  9. CALCIUM CARBONATE. [Concomitant]
     Active Substance: CALCIUM CARBONATE
     Dosage: STRENGTH: 1 G
  10. ALLOPURINOL. [Suspect]
     Active Substance: ALLOPURINOL
     Indication: PRODUCT USED FOR UNKNOWN INDICATION
     Route: 048
     Dates: start: 20190420, end: 20190516

REACTIONS (2)
  - Urticaria [Unknown]
  - Sopor [Unknown]

NARRATIVE: CASE EVENT DATE: 20190516
